FAERS Safety Report 16232416 (Version 1)
Quarter: 2019Q2

REPORT INFORMATION
  Report Type: Spontaneous
  Country: US (occurrence: US)
  Receive Date: 20190424
  Receipt Date: 20190424
  Transmission Date: 20190711
  Serious: Yes (Other)
  Sender: FDA-Public Use
  Company Number: US-AMGEN-USASP2019062916

PATIENT
  Age: 12 Year
  Sex: Male
  Weight: 20 kg

DRUGS (4)
  1. FOLIC ACID. [Concomitant]
     Active Substance: FOLIC ACID
     Indication: ANAEMIA
  2. POTASSIUM CITRATE. [Concomitant]
     Active Substance: POTASSIUM CITRATE
     Indication: CRYSTALLURIA
     Dosage: UNK
  3. EPOGEN [Suspect]
     Active Substance: ERYTHROPOIETIN
     Indication: ANAEMIA
     Dosage: UNK
     Route: 065
  4. ALLOPURINOL. [Concomitant]
     Active Substance: ALLOPURINOL
     Indication: CRYSTALLURIA
     Dosage: 200 MILLIGRAM, QD

REACTIONS (6)
  - Aspiration [Unknown]
  - Blood homocysteine increased [Unknown]
  - Off label use [Unknown]
  - Impaired gastric emptying [Unknown]
  - Venous thrombosis limb [Unknown]
  - Gastrooesophageal reflux disease [Unknown]
